FAERS Safety Report 18418317 (Version 1)
Quarter: 2020Q4

REPORT INFORMATION
  Report Type: Spontaneous
  Country: DE (occurrence: DE)
  Receive Date: 20201023
  Receipt Date: 20201023
  Transmission Date: 20210114
  Serious: Yes (Other)
  Sender: FDA-Public Use
  Company Number: DE-PFIZER INC-2020404716

PATIENT
  Age: 53 Year
  Sex: Female

DRUGS (9)
  1. DAUNORUBICIN HCL [Suspect]
     Active Substance: DAUNORUBICIN HYDROCHLORIDE
     Indication: ACUTE MYELOID LEUKAEMIA
     Dosage: UNK (CONSOLIDATION I)
     Dates: start: 201810
  2. DAUNORUBICIN HCL [Suspect]
     Active Substance: DAUNORUBICIN HYDROCHLORIDE
     Dosage: UNK (CONSOLIDATION II)
     Dates: start: 201811
  3. GEMTUZUMAB OZOGAMICIN [Suspect]
     Active Substance: GEMTUZUMAB OZOGAMICIN
     Indication: ACUTE MYELOID LEUKAEMIA
     Dosage: 7+3 SCHEMA
     Dates: start: 201809
  4. CYTARABINE. [Suspect]
     Active Substance: CYTARABINE
     Indication: ACUTE MYELOID LEUKAEMIA
     Dosage: UNK (CONSOLIDATION I)
     Dates: start: 201810
  5. GEMTUZUMAB OZOGAMICIN [Suspect]
     Active Substance: GEMTUZUMAB OZOGAMICIN
     Dosage: UNK (CONSOLIDATION I)
     Dates: start: 201810
  6. CYTARABINE. [Suspect]
     Active Substance: CYTARABINE
     Dosage: UNK (CONSOLIDATION II)
     Dates: start: 201811
  7. GEMTUZUMAB OZOGAMICIN [Suspect]
     Active Substance: GEMTUZUMAB OZOGAMICIN
     Dosage: UNK (CONSOLIDATION II)
     Dates: start: 201811
  8. IDARUBICIN HCL [Suspect]
     Active Substance: IDARUBICIN HYDROCHLORIDE
     Indication: ACUTE MYELOID LEUKAEMIA
     Dosage: 7+3 SCHEMA
     Dates: start: 20190902
  9. CYTARABINE. [Suspect]
     Active Substance: CYTARABINE
     Dosage: 7+3 SCHEMA
     Dates: start: 20190902

REACTIONS (4)
  - Graft versus host disease in skin [Unknown]
  - Jugular vein thrombosis [Unknown]
  - Neoplasm progression [Recovering/Resolving]
  - Herpes simplex [Unknown]

NARRATIVE: CASE EVENT DATE: 201908
